FAERS Safety Report 16336779 (Version 6)
Quarter: 2022Q2

REPORT INFORMATION
  Report Type: Report from Study
  Country: FR (occurrence: None)
  Receive Date: 20190521
  Receipt Date: 20220502
  Transmission Date: 20220721
  Serious: Yes (Hospitalization)
  Sender: FDA-Public Use
  Company Number: FR-ROCHE-2320576

PATIENT
  Age: 55 Year
  Sex: Female
  Weight: 57 kg

DRUGS (3)
  1. ATEZOLIZUMAB [Suspect]
     Active Substance: ATEZOLIZUMAB
     Indication: Lymphoma
     Dosage: DATE OF MOST RECENT DOSE OF ATEZOLIZUMAB PRIOR TO SAE: 31/JAN/2019? ON DAY 2 OF EACH 21-DAY CYCLE DU
     Route: 042
     Dates: start: 20181129
  2. VENETOCLAX [Suspect]
     Active Substance: VENETOCLAX
     Indication: Lymphoma
     Dosage: DATE OF MOST RECENT DOSE OF VENETOCLAX PRIOR TO SAE: 14/MAY/2019?DAY 8 OF CYCLE 1, EVERY DAY DURING
     Route: 065
     Dates: start: 20181205
  3. OBINUTUZUMAB [Suspect]
     Active Substance: OBINUTUZUMAB
     Indication: Lymphoma
     Dosage: DATE OF MOST RECENT DOSE OF OBINUTUZUMAB PRIOR TO SAE: 09/APR/2019?ON DAY 1, DAY 8 AND DAY 15 OF CYC
     Route: 042
     Dates: start: 20181128

REACTIONS (1)
  - Arthritis [Not Recovered/Not Resolved]

NARRATIVE: CASE EVENT DATE: 20190403
